FAERS Safety Report 9342342 (Version 1)
Quarter: 2013Q2

REPORT INFORMATION
  Report Type: Spontaneous
  Country: GB (occurrence: None)
  Receive Date: 20130607
  Receipt Date: 20130607
  Transmission Date: 20140414
  Serious: Yes (Other)
  Sender: FDA-Public Use
  Company Number: AUR-APL-2013-04679

PATIENT
  Age: 26 Year
  Sex: 0

DRUGS (30)
  1. TRAMADOL (TRAMADOL) [Suspect]
     Indication: PAIN
  2. TRAMADOL (TRAMADOL) [Suspect]
     Indication: MYALGIA
  3. TRAMADOL (TRAMADOL) [Suspect]
     Indication: OSTEOPOROSIS
  4. TRAMADOL (TRAMADOL) [Suspect]
     Indication: OSTEOARTHRITIS
  5. TRAMADOL (TRAMADOL) [Suspect]
     Indication: RHEUMATOID ARTHRITIS
  6. TRAMADOL (TRAMADOL) [Suspect]
     Indication: HYPERMOBILITY SYNDROME
  7. NAPROXEN (NAPROXEN) [Suspect]
     Indication: PAIN
  8. NAPROXEN (NAPROXEN) [Suspect]
     Indication: MYALGIA
  9. NAPROXEN (NAPROXEN) [Suspect]
     Indication: OSTEOPOROSIS
  10. NAPROXEN (NAPROXEN) [Suspect]
     Indication: OSTEOARTHRITIS
  11. NAPROXEN (NAPROXEN) [Suspect]
     Indication: RHEUMATOID ARTHRITIS
  12. NAPROXEN (NAPROXEN) [Suspect]
     Indication: HYPERMOBILITY SYNDROME
  13. CO-CODAMOL (PANADEINE CO) [Suspect]
     Indication: PAIN
  14. CO-CODAMOL (PANADEINE CO) [Suspect]
     Indication: MYALGIA
  15. CO-CODAMOL (PANADEINE CO) [Suspect]
     Indication: OSTEOPOROSIS
  16. CO-CODAMOL (PANADEINE CO) [Suspect]
     Indication: OSTEOARTHRITIS
  17. CO-CODAMOL (PANADEINE CO) [Suspect]
     Indication: RHEUMATOID ARTHRITIS
  18. CO-CODAMOL (PANADEINE CO) [Suspect]
     Indication: HYPERMOBILITY SYNDROME
  19. DICLOFENAC (DICLOFENAC) [Suspect]
     Indication: PAIN
  20. DICLOFENAC (DICLOFENAC) [Suspect]
     Indication: MYALGIA
  21. DICLOFENAC (DICLOFENAC) [Suspect]
     Indication: OSTEOPOROSIS
  22. DICLOFENAC (DICLOFENAC) [Suspect]
     Indication: OSTEOARTHRITIS
  23. DICLOFENAC (DICLOFENAC) [Suspect]
     Indication: RHEUMATOID ARTHRITIS
  24. DICLOFENAC (DICLOFENAC) [Suspect]
     Indication: HYPERMOBILITY SYNDROME
  25. LEFLUNOMIDE [Suspect]
     Indication: PAIN
  26. LEFLUNOMIDE [Suspect]
     Indication: MYALGIA
  27. LEFLUNOMIDE [Suspect]
     Indication: OSTEOPOROSIS
  28. LEFLUNOMIDE [Suspect]
     Indication: OSTEOARTHRITIS
  29. LEFLUNOMIDE [Suspect]
     Indication: RHEUMATOID ARTHRITIS
  30. LEFLUNOMIDE [Suspect]
     Indication: HYPERMOBILITY SYNDROME

REACTIONS (4)
  - Drug ineffective [None]
  - Quality of life decreased [None]
  - Suicidal ideation [None]
  - Anxiety [None]
